FAERS Safety Report 4436575-6 (Version None)
Quarter: 2004Q3

REPORT INFORMATION
  Report Type: 
  Country: None (occurrence: None)
  Receive Date: 20040830
  Receipt Date: 20040630
  Transmission Date: 20050211
  Serious: No
  Sender: FDA-Public Use
  Company Number: US-BRISTOL-MYERS SQUIBB COMPANY-12629572

PATIENT
  Age: 48 Year
  Sex: Female
  Weight: 66 kg

DRUGS (4)
  1. ABILIFY [Suspect]
     Indication: SCHIZOAFFECTIVE DISORDER
     Dosage: APPROX 1 YR AGO, 15 MG 2 TABLETS DAILY; THEN DOSE LOWERED TO 15 MG
     Route: 048
  2. LEXAPRO [Concomitant]
  3. WELLBUTRIN [Concomitant]
     Dosage: INIT. APPROX 1 YR AGO @ 150 MG/DAY;APPROX 1 MO. AGO INCR TO 300 MG/DAY; THEN DECR TO 150 MG/DAY
  4. KLONOPIN [Concomitant]
     Dates: end: 20040601

REACTIONS (2)
  - DYSKINESIA [None]
  - DYSTONIA [None]
